FAERS Safety Report 9387278 (Version 1)
Quarter: 2013Q3

REPORT INFORMATION
  Report Type: Spontaneous
  Country: US (occurrence: US)
  Receive Date: 20130708
  Receipt Date: 20130708
  Transmission Date: 20140515
  Serious: Yes (Hospitalization)
  Sender: FDA-Public Use
  Company Number: US-ELI_LILLY_AND_COMPANY-US201306008475

PATIENT
  Age: 81 Year
  Sex: Female

DRUGS (2)
  1. CYMBALTA [Suspect]
     Indication: DEPRESSION
     Dosage: 60 MG, QD
     Route: 048
     Dates: start: 2011
  2. COUMADIN SODIUM [Concomitant]

REACTIONS (5)
  - Cerebrovascular accident [Unknown]
  - Decreased interest [Unknown]
  - Wrong technique in drug usage process [Unknown]
  - Depression [Unknown]
  - Dysphagia [Unknown]
